FAERS Safety Report 25483349 (Version 2)
Quarter: 2025Q3

REPORT INFORMATION
  Report Type: Spontaneous
  Country: US (occurrence: US)
  Receive Date: 20250626
  Receipt Date: 20250712
  Transmission Date: 20251020
  Serious: Yes (Hospitalization, Other)
  Sender: SANOFI AVENTIS
  Company Number: US-SANOFI-02566429

PATIENT
  Age: 51 Year
  Sex: Female

DRUGS (10)
  1. DUPIXENT [Suspect]
     Active Substance: DUPILUMAB
     Indication: Eczema
     Route: 058
     Dates: start: 20250211, end: 20250211
  2. DUPIXENT [Suspect]
     Active Substance: DUPILUMAB
     Route: 058
     Dates: start: 20250225, end: 20250225
  3. CLOBETASOL PROPIONATE [Concomitant]
     Active Substance: CLOBETASOL PROPIONATE
     Route: 061
  4. TRIAMCINOLONE [Concomitant]
     Active Substance: TRIAMCINOLONE
     Indication: Eczema
     Dosage: UNK
     Route: 061
  5. ALLEGRA [Concomitant]
     Active Substance: FEXOFENADINE HYDROCHLORIDE
  6. SINGULAIR [Concomitant]
     Active Substance: MONTELUKAST SODIUM
  7. CEPHALEXIN [Concomitant]
     Active Substance: CEPHALEXIN
     Indication: Cellulitis
     Dosage: UNK UNK, TID
     Route: 048
     Dates: start: 20250603
  8. TACROLIMUS [Concomitant]
     Active Substance: TACROLIMUS
     Route: 061
     Dates: start: 20250601, end: 20250602
  9. OPZELURA [Concomitant]
     Active Substance: RUXOLITINIB PHOSPHATE
     Route: 061
     Dates: start: 20250602, end: 20250602
  10. HALOBETASOL PROPIONATE [Concomitant]
     Active Substance: HALOBETASOL PROPIONATE
     Indication: Eczema
     Dosage: BID
     Route: 061

REACTIONS (8)
  - Thrombotic stroke [Recovered/Resolved]
  - Confusional state [Recovering/Resolving]
  - Gait disturbance [Recovering/Resolving]
  - Asthenia [Recovering/Resolving]
  - Brain fog [Recovered/Resolved]
  - Cellulitis [Unknown]
  - Rheumatoid factor positive [Unknown]
  - Dermatitis contact [Not Recovered/Not Resolved]

NARRATIVE: CASE EVENT DATE: 20250101
